FAERS Safety Report 4350308-3 (Version None)
Quarter: 2004Q2

REPORT INFORMATION
  Report Type: 
  Country: None (occurrence: None)
  Receive Date: 20040429
  Receipt Date: 20040223
  Transmission Date: 20050107
  Serious: Yes (Life-Threatening, Hospitalization)
  Sender: FDA-Public Use
  Company Number: DE-MERCK-0402DEU00174

PATIENT
  Age: 91 Year
  Sex: Female
  Weight: 62 kg

DRUGS (6)
  1. ACETYLDIGOXIN [Concomitant]
     Route: 065
  2. CANDESARTAN CILEXETIL [Concomitant]
     Indication: CARDIAC FAILURE CONGESTIVE
     Route: 065
  3. MOLSIDOMINE [Concomitant]
     Route: 065
  4. PIRETANIDE [Concomitant]
     Route: 065
  5. VIOXX [Suspect]
     Indication: LOCALISED OSTEOARTHRITIS
     Route: 048
     Dates: start: 20040122, end: 20040201
  6. VIOXX [Suspect]
     Route: 048
     Dates: start: 20040122, end: 20040201

REACTIONS (3)
  - HYPOTENSION [None]
  - SOMNOLENCE [None]
  - UPPER GASTROINTESTINAL HAEMORRHAGE [None]
